FAERS Safety Report 19604147 (Version 2)
Quarter: 2021Q3

REPORT INFORMATION
  Report Type: Spontaneous
  Country: US (occurrence: US)
  Receive Date: 20210723
  Receipt Date: 20210817
  Transmission Date: 20211014
  Serious: Yes (Death)
  Sender: FDA-Public Use
  Company Number: US-ALKERMES INC.-ALK-2021-003816

PATIENT
  Age: 56 Year
  Sex: Female
  Weight: 181.41 kg

DRUGS (3)
  1. VIVITROL [Suspect]
     Active Substance: NALTREXONE
     Indication: ILLNESS
  2. VIVITROL [Suspect]
     Active Substance: NALTREXONE
     Indication: DRUG DEPENDENCE
     Dosage: 380 MILLIGRAM, Q28D
     Route: 030
     Dates: start: 20210527
  3. VIVITROL [Suspect]
     Active Substance: NALTREXONE
     Indication: ALCOHOLISM
     Dosage: 380 MILLIGRAM, Q28D
     Route: 030
     Dates: start: 20191219, end: 202104

REACTIONS (1)
  - Death [Fatal]

NARRATIVE: CASE EVENT DATE: 20210611
